FAERS Safety Report 22024077 (Version 1)
Quarter: 2023Q1

REPORT INFORMATION
  Report Type: Report from Study
  Country: US (occurrence: US)
  Receive Date: 20230223
  Receipt Date: 20230223
  Transmission Date: 20230417
  Serious: Yes (Other)
  Sender: FDA-Public Use
  Company Number: US-ABBVIE-4312660

PATIENT
  Age: 59 Year
  Sex: Female

DRUGS (16)
  1. RINVOQ [Suspect]
     Active Substance: UPADACITINIB
     Indication: Rheumatoid arthritis
     Route: 048
  2. SIMVASTATINX [Concomitant]
     Indication: Product used for unknown indication
     Dosage: 40 MG TABLET
  3. DOXYCYCLINE [Concomitant]
     Active Substance: DOXYCYCLINE
     Indication: Product used for unknown indication
     Dosage: 100 MG CAPSULE
  4. ZYRTEC [Concomitant]
     Active Substance: CETIRIZINE HYDROCHLORIDE
     Indication: Product used for unknown indication
     Dosage: 10 MG CAPSULE
  5. ALBUTEROL SULFATE [Concomitant]
     Active Substance: ALBUTEROL SULFATE
     Indication: Product used for unknown indication
  6. SHINGRIX [Concomitant]
     Active Substance: RECOMBINANT VARICELLA ZOSTER VIRUS (VZV) GLYCOPROTEIN E
     Indication: Product used for unknown indication
     Dosage: 50 MCG/0.5 KIT
  7. VITAMIN D3 [Concomitant]
     Active Substance: CHOLECALCIFEROL
     Indication: Product used for unknown indication
     Dosage: 50 MCG CAPSULE
  8. LOSARTAN POTASSIUM JG [Concomitant]
     Indication: Product used for unknown indication
     Dosage: 100 MG TABLET
  9. GABAPENTIN 2K [Concomitant]
     Indication: Product used for unknown indication
     Dosage: 300 MG CAPSULE
  10. D sodium [Concomitant]
     Indication: Product used for unknown indication
     Dosage: 1 % GEL (GRAM)
  11. FLUAD QUAD [Concomitant]
     Indication: Product used for unknown indication
  12. NEXIUM [Concomitant]
     Active Substance: ESOMEPRAZOLE MAGNESIUM
     Indication: Product used for unknown indication
     Dosage: 40 MG CAPSULE
  13. ARAVA [Concomitant]
     Active Substance: LEFLUNOMIDE
     Indication: Product used for unknown indication
     Dosage: 10 MG TABLET
  14. ONDANSETRON [Concomitant]
     Active Substance: ONDANSETRON
     Indication: Product used for unknown indication
     Dosage: 4 MG TABLET
  15. AMLODIPINE [Concomitant]
     Active Substance: AMLODIPINE BESYLATE
     Indication: Product used for unknown indication
     Dosage: 10 MG TABLET
  16. CALCIUM [Concomitant]
     Active Substance: CALCIUM
     Indication: Product used for unknown indication
     Dosage: 600 MG TABLET

REACTIONS (5)
  - Shoulder operation [Unknown]
  - Rheumatoid arthritis [Unknown]
  - Viral infection [Unknown]
  - Loss of personal independence in daily activities [Unknown]
  - Cough [Unknown]

NARRATIVE: CASE EVENT DATE: 20230201
